FAERS Safety Report 14591419 (Version 2)
Quarter: 2018Q1

REPORT INFORMATION
  Report Type: Report from Study
  Country: CN (occurrence: CN)
  Receive Date: 20180302
  Receipt Date: 20180322
  Transmission Date: 20180509
  Serious: Yes (Death, Hospitalization)
  Sender: FDA-Public Use
  Company Number: CN-BAYER-2018-027009

PATIENT
  Sex: Female

DRUGS (1)
  1. STIVARGA [Suspect]
     Active Substance: REGORAFENIB
     Indication: COLORECTAL CANCER
     Dosage: 80 MG, QD
     Route: 048
     Dates: start: 20180116

REACTIONS (4)
  - Diarrhoea [Recovering/Resolving]
  - Alpha 1 foetoprotein increased [Unknown]
  - Death [Fatal]
  - Dehydration [Recovering/Resolving]

NARRATIVE: CASE EVENT DATE: 20180208
